FAERS Safety Report 4854473-0 (Version None)
Quarter: 2005Q4

REPORT INFORMATION
  Report Type: 
  Country: None (occurrence: None)
  Receive Date: 20051213
  Receipt Date: 20051130
  Transmission Date: 20060501
  Serious: Yes (Other)
  Sender: FDA-Public Use
  Company Number: 2005163182

PATIENT
  Age: 57 Year
  Sex: Female

DRUGS (2)
  1. AROMASIN [Suspect]
     Indication: BREAST CANCER FEMALE
     Dosage: ORAL
     Route: 048
     Dates: start: 20040101
  2. ANASTROZOLE (ANASTROZOLE) [Suspect]
     Indication: BREAST CANCER FEMALE
     Dosage: ORAL
     Route: 048
     Dates: start: 20040101

REACTIONS (6)
  - ARTHRALGIA [None]
  - BLOOD CHOLESTEROL INCREASED [None]
  - BLOOD CREATINE PHOSPHOKINASE INCREASED [None]
  - BLOOD CREATINE PHOSPHOKINASE MM INCREASED [None]
  - INADEQUATE ANALGESIA [None]
  - JOINT SWELLING [None]
